FAERS Safety Report 4523275-7 (Version None)
Quarter: 2004Q4

REPORT INFORMATION
  Report Type: 
  Country: None (occurrence: None)
  Receive Date: 20041209
  Receipt Date: 20041209
  Transmission Date: 20050328
  Serious: Yes (Life-Threatening, Other)
  Sender: FDA-Public Use
  Company Number: None

PATIENT
  Age: 94 Year
  Sex: Female
  Weight: 62.5964 kg

DRUGS (5)
  1. AMIODARONE 200 MG/DAY [Suspect]
     Indication: CARDIAC FIBRILLATION
     Dosage: 200 MG PO QD
     Route: 048
     Dates: start: 19990101, end: 20041001
  2. WARFARIN SODIUM [Concomitant]
  3. DIGOXIN [Concomitant]
  4. FUROSEMIDE [Concomitant]
  5. METOPROLOL [Concomitant]

REACTIONS (2)
  - LUNG DISORDER [None]
  - LUNG NEOPLASM [None]
